FAERS Safety Report 4905965-7 (Version None)
Quarter: 2006Q1

REPORT INFORMATION
  Report Type: 
  Country: None (occurrence: None)
  Receive Date: 20060206
  Receipt Date: 20060124
  Transmission Date: 20060701
  Serious: Yes (Other)
  Sender: FDA-Public Use
  Company Number: 2006013117

PATIENT
  Sex: Female
  Weight: 71.2147 kg

DRUGS (1)
  1. DETROL [Suspect]
     Indication: HYPERTONIC BLADDER
     Dosage: 4 MG (2 MG, 2 IN 1 D), ORAL
     Route: 048
     Dates: start: 20030101

REACTIONS (12)
  - ANAEMIA [None]
  - BONE NEOPLASM MALIGNANT [None]
  - CONDITION AGGRAVATED [None]
  - DIARRHOEA [None]
  - LYMPHADENECTOMY [None]
  - MALAISE [None]
  - MASTECTOMY [None]
  - MUSCLE SPASMS [None]
  - NEOPLASM PROGRESSION [None]
  - ORAL INTAKE REDUCED [None]
  - VIRAL INFECTION [None]
  - VOMITING [None]
